FAERS Safety Report 6200093-5 (Version None)
Quarter: 2009Q2

REPORT INFORMATION
  Report Type: 
  Country: None (occurrence: None)
  Receive Date: 20090522
  Receipt Date: 20090511
  Transmission Date: 20091009
  Serious: Yes (Hospitalization)
  Sender: FDA-Public Use
  Company Number: AU-JNJFOC-20040800408

PATIENT
  Sex: Female
  Weight: 20 kg

DRUGS (4)
  1. PARACETAMOL [Suspect]
  2. PARACETAMOL [Suspect]
     Indication: OTITIS MEDIA
     Dosage: APPROXIMATELY 2400 MG OVER 72 HOURS IN DIVIDED DOSES
  3. ACETAMINOPHEN [Suspect]
     Indication: OTITIS MEDIA
     Dosage: 2.88 G OVER 17 HOURS
  4. CEFACLOR [Concomitant]
     Indication: OTITIS MEDIA

REACTIONS (8)
  - ABDOMINAL PAIN [None]
  - ACUTE HEPATIC FAILURE [None]
  - HYPERBILIRUBINAEMIA [None]
  - HYPOTENSION [None]
  - HYPOXIA [None]
  - OVERDOSE [None]
  - PROTHROMBIN LEVEL INCREASED [None]
  - VOMITING [None]
